FAERS Safety Report 10202760 (Version 1)
Quarter: 2014Q2

REPORT INFORMATION
  Report Type: Spontaneous
  Country: GB (occurrence: GB)
  Receive Date: 20140528
  Receipt Date: 20140528
  Transmission Date: 20141212
  Serious: Yes (Hospitalization)
  Sender: FDA-Public Use
  Company Number: GB-PFIZER INC-2014143504

PATIENT
  Age: 22 Year
  Sex: Female
  Weight: 42 kg

DRUGS (1)
  1. CHAMPIX [Suspect]
     Indication: SMOKING CESSATION THERAPY
     Dosage: 500 UG, 2X/DAY
     Route: 048
     Dates: start: 20140411, end: 20140428

REACTIONS (8)
  - Paranoia [Unknown]
  - Abnormal behaviour [Unknown]
  - Mental disorder [Unknown]
  - Dizziness [Unknown]
  - Porphyria [Unknown]
  - Tearfulness [Unknown]
  - Anxiety [Unknown]
  - Rash [Unknown]
